FAERS Safety Report 9626896 (Version 3)
Quarter: 2013Q4

REPORT INFORMATION
  Report Type: Report from Study
  Country: BE (occurrence: BE)
  Receive Date: 20131016
  Receipt Date: 20131127
  Transmission Date: 20140711
  Serious: Yes (Hospitalization, Other)
  Sender: FDA-Public Use
  Company Number: BE-PFIZER INC-2013289593

PATIENT
  Age: 69 Year
  Sex: Female
  Weight: 96 kg

DRUGS (11)
  1. FLUOROURACIL [Suspect]
     Indication: COLORECTAL CANCER METASTATIC
     Dosage: 400 MG/M2 BOLUS ON DAY 1 EVERY 14 DAYS
     Route: 040
     Dates: start: 20121129, end: 20130508
  2. FLUOROURACIL [Suspect]
     Dosage: 2400 MG/M2, ON DAYS ONE AND TWO EVERY 14 DAYS
     Route: 041
     Dates: start: 20121129, end: 20130508
  3. IRINOTECAN HCL [Suspect]
     Indication: COLORECTAL CANCER METASTATIC
     Dosage: 180 MG/M2, ON DAY ONE EVERY 14 DAYS
     Route: 042
     Dates: start: 20121129, end: 20130508
  4. FOLINIC ACID [Suspect]
     Indication: COLORECTAL CANCER METASTATIC
     Dosage: 400 MG/M2, ON DAY ONE EVERY 14 DAYS
     Route: 042
     Dates: start: 20121129, end: 20130508
  5. BLINDED THERAPY [Suspect]
     Indication: COLORECTAL CANCER METASTATIC
     Dosage: UNK
     Route: 042
     Dates: start: 20121129, end: 20130508
  6. BISOPROL [Concomitant]
     Indication: HYPERTENSION
     Dosage: UNK
     Dates: start: 2010
  7. OMEPRAZOLE [Concomitant]
     Indication: OESOPHAGITIS
     Dosage: UNK
     Dates: start: 2002
  8. STRUMAZOLE [Concomitant]
     Indication: HYPERTHYROIDISM
     Dosage: UNK
     Dates: start: 2006
  9. ZALDIAR [Concomitant]
     Indication: PAIN
     Dosage: UNK
     Dates: start: 2007
  10. COAPROVEL [Concomitant]
     Indication: HYPERTENSION
     Dosage: UNK
     Dates: start: 2004
  11. SERTRALIN [Concomitant]
     Indication: DEPRESSION
     Dosage: UNK
     Dates: start: 1998

REACTIONS (2)
  - Epilepsy [Recovered/Resolved]
  - Transient ischaemic attack [Recovering/Resolving]
